FAERS Safety Report 24132836 (Version 2)
Quarter: 2024Q3

REPORT INFORMATION
  Report Type: Spontaneous
  Country: US (occurrence: US)
  Receive Date: 20240724
  Receipt Date: 20240830
  Transmission Date: 20241017
  Serious: No
  Sender: SANOFI AVENTIS
  Company Number: US-SA-SAC20240722001580

PATIENT
  Age: 57 Year
  Sex: Female
  Weight: 71 kg

DRUGS (6)
  1. DUPIXENT [Suspect]
     Active Substance: DUPILUMAB
     Indication: Dermatitis atopic
     Dosage: 300 MG, QOW
     Route: 058
     Dates: start: 202404, end: 202408
  2. OMNITROPE [Concomitant]
     Active Substance: SOMATROPIN
  3. OMNITROPE [Concomitant]
     Active Substance: SOMATROPIN
  4. BOTOX [Concomitant]
     Active Substance: ONABOTULINUMTOXINA
  5. BOTOX [Concomitant]
     Active Substance: ONABOTULINUMTOXINA
  6. ASPIRIN [Concomitant]
     Active Substance: ASPIRIN

REACTIONS (7)
  - Gait disturbance [Not Recovered/Not Resolved]
  - Weight increased [Unknown]
  - Petechiae [Not Recovered/Not Resolved]
  - Muscular weakness [Not Recovered/Not Resolved]
  - Arthralgia [Not Recovered/Not Resolved]
  - Eczema [Not Recovered/Not Resolved]
  - Drug ineffective [Not Recovered/Not Resolved]

NARRATIVE: CASE EVENT DATE: 20240101
